FAERS Safety Report 8582473-6 (Version None)
Quarter: 2012Q3

REPORT INFORMATION
  Report Type: 
  Country: None (occurrence: None)
  Receive Date: 20120809
  Receipt Date: 20120731
  Transmission Date: 20120928
  Serious: Yes (Hospitalization)
  Sender: FDA-Public Use
  Company Number: FR-JNJFOC-20120801815

PATIENT
  Age: 54 Year
  Sex: Male

DRUGS (4)
  1. REMICADE [Suspect]
     Indication: COLITIS ULCERATIVE
     Dosage: SEVENTH INFUSION
     Route: 042
     Dates: start: 20120117, end: 20120117
  2. OMEPRAZOLE [Suspect]
     Indication: COLITIS ULCERATIVE
     Route: 048
     Dates: start: 20120113, end: 20120303
  3. REMICADE [Suspect]
     Route: 042
  4. PENTASA [Suspect]
     Indication: COLITIS ULCERATIVE
     Route: 048
     Dates: start: 20110101

REACTIONS (2)
  - PROCTOCOLITIS [None]
  - RECTAL HAEMORRHAGE [None]
